FAERS Safety Report 5273287-3 (Version None)
Quarter: 2007Q1

REPORT INFORMATION
  Report Type: 
  Country: None (occurrence: None)
  Receive Date: 20070319
  Receipt Date: 20070212
  Transmission Date: 20070707
  Serious: Yes (Death, Other)
  Sender: FDA-Public Use
  Company Number: 2007S1000173

PATIENT
  Sex: Female

DRUGS (2)
  1. CUBICIN [Suspect]
     Indication: ENDOCARDITIS
  2. CUBICIN [Suspect]
     Indication: ENTEROCOCCAL INFECTION

REACTIONS (2)
  - GENERAL PHYSICAL HEALTH DETERIORATION [None]
  - INTESTINAL OPERATION [None]
